FAERS Safety Report 4656581-6 (Version None)
Quarter: 2005Q2

REPORT INFORMATION
  Report Type: 
  Country: None (occurrence: None)
  Receive Date: 20050331
  Receipt Date: 20041209
  Transmission Date: 20051028
  Serious: No
  Sender: FDA-Public Use
  Company Number: US102884

PATIENT
  Age: 28 Year
  Sex: Male

DRUGS (6)
  1. NEULASTA [Suspect]
     Indication: CHEMOTHERAPY
  2. CISPLATIN [Concomitant]
  3. ETOPOSIDE [Concomitant]
  4. BLEOMYCIN SULFATE [Concomitant]
  5. DEXAMETHASONE [Concomitant]
  6. HYDROCORTISONE [Concomitant]

REACTIONS (2)
  - PAIN [None]
  - RASH PRURITIC [None]
